FAERS Safety Report 24571719 (Version 1)
Quarter: 2024Q4

REPORT INFORMATION
  Report Type: Spontaneous
  Country: US (occurrence: US)
  Receive Date: 20241101
  Receipt Date: 20241101
  Transmission Date: 20250115
  Serious: No
  Sender: TOLMAR, INC.
  Company Number: US-TOLMAR, INC.-24US053094

PATIENT
  Age: 0 Year
  Sex: Male

DRUGS (2)
  1. FENSOLVI [Suspect]
     Active Substance: LEUPROLIDE ACETATE
     Indication: Gender dysphoria
     Dosage: 45 MILLIGRAM
  2. DEVICE [Suspect]
     Active Substance: DEVICE
     Indication: Gender dysphoria
     Dosage: UNK

REACTIONS (1)
  - Off label use [Unknown]

NARRATIVE: CASE EVENT DATE: 20240901
